FAERS Safety Report 4487660-4 (Version None)
Quarter: 2004Q4

REPORT INFORMATION
  Report Type: 
  Country: None (occurrence: None)
  Receive Date: 20041027
  Receipt Date: 20041027
  Transmission Date: 20050328
  Serious: Yes (Hospitalization)
  Sender: FDA-Public Use
  Company Number: None

PATIENT
  Age: 73 Year
  Sex: Male
  Weight: 130 kg

DRUGS (15)
  1. BACTRIM DS [Suspect]
     Indication: SKIN INFECTION
     Dosage: 800/160 MG BID ORAL
     Route: 048
     Dates: start: 20040121, end: 20040130
  2. WARFARIN SODIUM [Suspect]
     Indication: PULMONARY EMBOLISM
     Dosage: VARIED QD ORAL
     Route: 048
     Dates: start: 19981027, end: 20040510
  3. INSULIN [Concomitant]
  4. ASPIRIN [Concomitant]
  5. DOCUSATE [Concomitant]
  6. FELODIPINE [Concomitant]
  7. GEMFIBROZIL [Concomitant]
  8. ISOSORBIDE [Concomitant]
  9. METOPROLOL SUCCINATE [Concomitant]
  10. NTG SL [Concomitant]
  11. OMEPRAZOLE [Concomitant]
  12. OXYBUTYNIN [Concomitant]
  13. PRAMIPAXOLE [Concomitant]
  14. COLCHICINE [Concomitant]
  15. FUROSEMIDE [Concomitant]

REACTIONS (5)
  - ASTHENIA [None]
  - DYSPNOEA [None]
  - EPISTAXIS [None]
  - GASTROINTESTINAL HAEMORRHAGE [None]
  - PENILE ULCERATION [None]
